FAERS Safety Report 4782310-1 (Version None)
Quarter: 2005Q3

REPORT INFORMATION
  Report Type: 
  Country: None (occurrence: None)
  Receive Date: 20050914
  Receipt Date: 20050706
  Transmission Date: 20060218
  Serious: Yes (Other)
  Sender: FDA-Public Use
  Company Number: 163-20785-05070151

PATIENT

DRUGS (4)
  1. THALOMID [Suspect]
     Indication: THYROID GLAND CANCER
     Dosage: 400 MG, DAILY DAYS -6 TO 7, ORAL; 400 MG, QHS, ORAL
     Route: 048
     Dates: start: 20040224, end: 20040101
  2. THALOMID [Suspect]
     Indication: THYROID GLAND CANCER
     Dosage: 400 MG, DAILY DAYS -6 TO 7, ORAL; 400 MG, QHS, ORAL
     Route: 048
     Dates: start: 20040106, end: 20040201
  3. CPT-11 (IRINOTECAN) (UNKNOWN) [Suspect]
     Indication: THYROID GLAND CANCER
     Dosage: 350 MG/M2 IV OVER 90 MINUTES ON DAYS 1 AND 22 FOR CYCLE 1; 350 MG/M2 IV OVER 90 MINUTES ON DAY 1 EVE
     Dates: start: 20040224, end: 20040101
  4. CPT-11 (IRINOTECAN) (UNKNOWN) [Suspect]
     Indication: THYROID GLAND CANCER
     Dosage: 350 MG/M2 IV OVER 90 MINUTES ON DAYS 1 AND 22 FOR CYCLE 1; 350 MG/M2 IV OVER 90 MINUTES ON DAY 1 EVE
     Dates: start: 20040106, end: 20040201

REACTIONS (1)
  - DIARRHOEA [None]
